FAERS Safety Report 6087562-6 (Version None)
Quarter: 2009Q1

REPORT INFORMATION
  Report Type: 
  Country: None (occurrence: None)
  Receive Date: 20090223
  Receipt Date: 20090219
  Transmission Date: 20090719
  Serious: Yes (Death, Life-Threatening, Hospitalization, Other)
  Sender: FDA-Public Use
  Company Number: PHHO2009BE02564

PATIENT
  Sex: Female
  Weight: 70 kg

DRUGS (7)
  1. CYCLOSPORINE [Suspect]
     Route: 048
  2. ANIDULAFUNGIN [Suspect]
     Indication: SYSTEMIC CANDIDA
     Dosage: 200 MG, DAILY
     Route: 042
     Dates: start: 20090116, end: 20090116
  3. ANIDULAFUNGIN [Suspect]
     Dosage: 100 MG, DAILY
     Route: 042
     Dates: start: 20090117
  4. VORICONAZOLE [Suspect]
     Dosage: 420 MG, BID
     Route: 042
     Dates: start: 20090116, end: 20090116
  5. VORICONAZOLE [Suspect]
     Dosage: 280 MG, BID
     Route: 042
     Dates: start: 20090117
  6. VANCOMYCIN [Suspect]
     Dosage: UNK
     Dates: end: 20090120
  7. FOSCAVIR [Suspect]
     Dosage: UNK
     Dates: start: 20090114, end: 20090127

REACTIONS (23)
  - BLOOD GLUCOSE DECREASED [None]
  - DRUG TOXICITY [None]
  - EPSTEIN-BARR VIRUS ASSOCIATED LYMPHOPROLIFERATIVE DISORDER [None]
  - FACE OEDEMA [None]
  - FLUID RETENTION [None]
  - GENERALISED OEDEMA [None]
  - HAEMODIALYSIS [None]
  - HAEMODYNAMIC INSTABILITY [None]
  - HYPERKALAEMIA [None]
  - HYPOALBUMINAEMIA [None]
  - HYPOTENSION [None]
  - LACTIC ACIDOSIS [None]
  - LOCALISED OEDEMA [None]
  - METABOLIC ACIDOSIS [None]
  - MULTI-ORGAN FAILURE [None]
  - OXYGEN SATURATION DECREASED [None]
  - PALLOR [None]
  - PLEURAL EFFUSION [None]
  - PULMONARY OEDEMA [None]
  - RENAL FAILURE [None]
  - SHOCK [None]
  - SOMNOLENCE [None]
  - TACHYPNOEA [None]
